FAERS Safety Report 9310355 (Version 7)
Quarter: 2014Q1

REPORT INFORMATION
  Report Type: Report from Study
  Country: JP (occurrence: JP)
  Receive Date: 20130527
  Receipt Date: 20140224
  Transmission Date: 20141002
  Serious: Yes (Life-Threatening, Hospitalization)
  Sender: FDA-Public Use
  Company Number: JP-PFIZER INC-2013158590

PATIENT
  Age: 64 Year
  Sex: Female
  Weight: 53 kg

DRUGS (13)
  1. XALKORI [Suspect]
     Indication: NON-SMALL CELL LUNG CANCER
     Dosage: 250 MG, 2X/DAY
     Route: 048
     Dates: start: 20121011, end: 20121012
  2. XALKORI [Suspect]
     Dosage: 250 MG, 2X/DAY
     Route: 048
     Dates: start: 20121016, end: 20121121
  3. XALKORI [Suspect]
     Dosage: 250 MG, 2X/DAY
     Route: 048
     Dates: start: 20130111, end: 20130204
  4. XALKORI [Suspect]
     Dosage: 250 MG, 2X/DAY
     Route: 048
     Dates: start: 20130322, end: 20130415
  5. AMOBAN [Concomitant]
     Dosage: 7.5 MG, 1X/DAY
     Route: 048
     Dates: start: 20130322
  6. NOVAMIN [Concomitant]
     Indication: PROPHYLAXIS OF NAUSEA AND VOMITING
     Dosage: 5 MG, 3X/DAY
     Route: 048
     Dates: start: 20130322, end: 20130418
  7. MARZULENE S [Concomitant]
     Indication: PROPHYLAXIS OF NAUSEA AND VOMITING
     Dosage: 0.67 G, 3X/DAY
     Route: 048
     Dates: start: 20130322
  8. PRIMPERAN [Concomitant]
     Indication: PROPHYLAXIS OF NAUSEA AND VOMITING
     Dosage: 5 MG, 6 TIMES DAILY
     Route: 048
     Dates: start: 20130322
  9. LOPEMIN [Concomitant]
     Indication: DIARRHOEA
     Dosage: 1 MG, AS NEEDED
     Route: 048
     Dates: start: 20130405, end: 20130405
  10. LASIX [Concomitant]
     Dosage: 20 MG, 1X/DAY
     Route: 048
     Dates: start: 20130405
  11. SOLDEM 3A [Concomitant]
     Dosage: 500 ML, 1X/DAY
     Route: 041
     Dates: start: 20130204, end: 20130211
  12. PLAS-AMINO [Concomitant]
     Dosage: 500 ML, 1X/DAY
     Route: 041
     Dates: start: 20130204, end: 20130207
  13. VITAMEDIN INTRAVENOUS [Concomitant]
     Dosage: UNKNOWN DOSE ONCE DAILY
     Route: 042
     Dates: start: 20130204, end: 20130211

REACTIONS (3)
  - Interstitial lung disease [Recovering/Resolving]
  - Pleurisy [Recovered/Resolved]
  - Pleurisy [Recovered/Resolved]
